FAERS Safety Report 4939512-0 (Version None)
Quarter: 2006Q1

REPORT INFORMATION
  Report Type: 
  Country: None (occurrence: None)
  Receive Date: 20060306
  Receipt Date: 20060217
  Transmission Date: 20060701
  Serious: Yes (Other)
  Sender: FDA-Public Use
  Company Number: 2006BL000898

PATIENT
  Age: 15 Year
  Sex: Male

DRUGS (3)
  1. PREDNISOLONE SODIUM PHOSPHATE [Suspect]
     Dosage: EVERY OTHER DAY
  2. CYCLOSPORINE [Suspect]
     Dosage: 350 MILLIGRAMS; DAILY; ORAL
     Route: 048
  3. MYCOPHENOLATE MOFETIL (MYCOPHENOLATE MOFETIL) [Suspect]
     Dosage: 1 GRAMS;

REACTIONS (2)
  - HYPERPLASIA [None]
  - LYMPHOPROLIFERATIVE DISORDER [None]
